FAERS Safety Report 5416785-1 (Version None)
Quarter: 2007Q3

REPORT INFORMATION
  Report Type: 
  Country: None (occurrence: None)
  Receive Date: 20070815
  Receipt Date: 20070815
  Transmission Date: 20080115
  Serious: Yes (Death)
  Sender: FDA-Public Use
  Company Number: None

PATIENT
  Sex: Male

DRUGS (3)
  1. FLUDARABINE PHOSPHATE [Suspect]
     Indication: STEM CELL TRANSPLANT
     Dosage: 53 MG DAILY IV DRIP
     Route: 041
     Dates: start: 20070509, end: 20070513
  2. CAMPATH [Suspect]
     Indication: STEM CELL TRANSPLANT
     Dosage: 20MG DAILY IV DRIP
     Route: 041
     Dates: start: 20070509, end: 20070513
  3. BUSULFAN [Suspect]
     Dosage: 291 MG X2DAYS 473 X 2DAYS DAILY IV DRIP
     Route: 041
     Dates: start: 20070510, end: 20070513

REACTIONS (4)
  - BLOOD CULTURE POSITIVE [None]
  - DRUG TOXICITY [None]
  - JC VIRUS INFECTION [None]
  - PROGRESSIVE MULTIFOCAL LEUKOENCEPHALOPATHY [None]
